FAERS Safety Report 8246086-8 (Version None)
Quarter: 2012Q1

REPORT INFORMATION
  Report Type: 
  Country: None (occurrence: None)
  Receive Date: 20120330
  Receipt Date: 20120327
  Transmission Date: 20120608
  Serious: Yes (Death, Other)
  Sender: FDA-Public Use
  Company Number: PHEH2012US004574

PATIENT
  Sex: Male
  Weight: 75.75 kg

DRUGS (17)
  1. PLAVIX [Concomitant]
     Dosage: 1 DF, QD
     Route: 048
  2. VOLTAREN [Concomitant]
     Dosage: UNK UKN, UNK
  3. RECLAST [Suspect]
     Indication: OSTEOPOROSIS
     Dosage: UNK UKN, UNK
     Route: 042
     Dates: start: 20110214
  4. FOLIC ACID [Concomitant]
     Dosage: 5 DF, DAILY
     Route: 048
  5. METOPROLOL SUCCINATE [Concomitant]
     Dosage: 0.5 DF, QD
  6. OMEPRAZOLE [Concomitant]
     Dosage: 1 DF, PRN
  7. AMIODARONE HCL [Concomitant]
     Dosage: 1 DF, QD
     Route: 048
  8. MULTIVITAMIN [Concomitant]
     Dosage: 1 DF, QD
     Route: 048
  9. FERROUS GLUCONATE [Concomitant]
     Dosage: UNK UKN, UNK
     Route: 048
  10. ASCORBIC ACID [Concomitant]
     Dosage: UNK UKN, UNK
     Route: 048
  11. LISINOPRIL [Concomitant]
     Dosage: UNK UKN, UNK
  12. CALCIUM CARBONATE W/COLECALCIFEROL [Concomitant]
     Dosage: UNK UKN, UNK
     Route: 048
  13. FLAXSEED OIL [Concomitant]
     Dosage: UNK UKN, UNK
  14. GEMFIBROZIL [Concomitant]
     Dosage: 1 DF, QD
  15. SIMVASTATIN [Concomitant]
     Dosage: 1 DF, QD
  16. TRIAMCINOLONE [Concomitant]
     Dosage: UNK UKN, UNK
  17. ACETAMINOPHEN AND HYDROCODONE BITARTRATE [Concomitant]
     Dosage: 1 DF (5MG/500MG), UNK

REACTIONS (27)
  - JOINT CREPITATION [None]
  - BURNING SENSATION [None]
  - MYALGIA [None]
  - MALAISE [None]
  - PARAESTHESIA [None]
  - HEART RATE DECREASED [None]
  - JOINT EFFUSION [None]
  - MUSCLE TIGHTNESS [None]
  - MOBILITY DECREASED [None]
  - MUSCULOSKELETAL PAIN [None]
  - FATIGUE [None]
  - NECK PAIN [None]
  - JOINT WARMTH [None]
  - DRY EYE [None]
  - DEPRESSION [None]
  - JOINT STIFFNESS [None]
  - DEATH [None]
  - BLOOD PRESSURE SYSTOLIC INCREASED [None]
  - ARTHROPATHY [None]
  - MOOD SWINGS [None]
  - JOINT SWELLING [None]
  - HYPOAESTHESIA [None]
  - OEDEMA PERIPHERAL [None]
  - DRY MOUTH [None]
  - INSOMNIA [None]
  - BACK PAIN [None]
  - ARTHRALGIA [None]
